FAERS Safety Report 21542771 (Version 1)
Quarter: 2022Q4

REPORT INFORMATION
  Report Type: Spontaneous
  Country: MX (occurrence: MX)
  Receive Date: 20221102
  Receipt Date: 20221102
  Transmission Date: 20230113
  Serious: Yes (Hospitalization, Other)
  Sender: FDA-Public Use
  Company Number: MX-BRISTOL-MYERS SQUIBB COMPANY-2022-128221

PATIENT
  Age: 66 Year
  Sex: Female
  Weight: 49 kg

DRUGS (6)
  1. YERVOY [Suspect]
     Active Substance: IPILIMUMAB
     Indication: Malignant melanoma
     Route: 065
     Dates: start: 20220430, end: 20220703
  2. OPDIVO [Suspect]
     Active Substance: NIVOLUMAB
     Indication: Malignant melanoma
     Dosage: 4 TREATMENTS GIVEN IN COMBINATION WITH YERVOY.   ? FREQ: MONTHLY
     Route: 042
     Dates: start: 20220430, end: 20220703
  3. OPDIVO [Suspect]
     Active Substance: NIVOLUMAB
     Dosage: GIVEN AS MONOTHERAPY
     Route: 042
     Dates: start: 20220725, end: 20220725
  4. PRAZOSIN [Concomitant]
     Active Substance: PRAZOSIN
     Indication: Product used for unknown indication
     Route: 065
  5. NIFEDIPINE [Concomitant]
     Active Substance: NIFEDIPINE
     Indication: Product used for unknown indication
     Route: 065
  6. IRBESARTAN [Concomitant]
     Active Substance: IRBESARTAN
     Indication: Product used for unknown indication
     Route: 065

REACTIONS (5)
  - Pain in extremity [Unknown]
  - Loss of consciousness [Unknown]
  - Hepatitis [Unknown]
  - Bacterial infection [Unknown]
  - Central nervous system infection [Unknown]

NARRATIVE: CASE EVENT DATE: 20220728
